FAERS Safety Report 8592408-8 (Version None)
Quarter: 2012Q3

REPORT INFORMATION
  Report Type: 
  Country: None (occurrence: None)
  Receive Date: 20120814
  Receipt Date: 20120807
  Transmission Date: 20120928
  Serious: Yes (Hospitalization, Other)
  Sender: FDA-Public Use
  Company Number: BR-SANOFI-AVENTIS-2012SA045734

PATIENT
  Age: 40 Year
  Sex: Female
  Weight: 78 kg

DRUGS (14)
  1. NOVORAPID [Concomitant]
     Dosage: DOSE: ACCORDING TO GLYCEMIA
     Route: 058
  2. MEBEVERINE [Concomitant]
     Indication: GASTROINTESTINAL DISORDER
     Route: 048
  3. CLIKSTAR [Concomitant]
     Indication: DEVICE THERAPY
     Dates: start: 20090101
  4. LACTULOSE [Concomitant]
     Dosage: FORM: ENVELOPE
  5. GABAPENTIN [Concomitant]
     Route: 048
  6. MULTI-VITAMINS [Concomitant]
     Route: 048
  7. LANTUS [Suspect]
     Dosage: IN MORNING IN FASTING
     Route: 058
     Dates: start: 20070101
  8. ASPIRIN [Concomitant]
     Indication: CEREBROVASCULAR ACCIDENT PROPHYLAXIS
     Route: 048
  9. GLUCOSAMINE SULFATE W/CHONDROITIN [Concomitant]
     Dosage: FORM: ENVELOPE
  10. BACTRIM [Concomitant]
     Route: 048
  11. BALM/MAGNESIUM/OMEGA 3 FATTY ACIDS/SELENIUM/VITAMIN B6/ VITAMIN E/ZINC [Concomitant]
     Route: 048
  12. CIPROFIBRATE [Concomitant]
     Route: 048
  13. OMEPRAZOLE [Concomitant]
     Indication: GASTRIC DISORDER
     Dosage: STRENGTH: 40 MG
     Route: 048
  14. ROSUVASTATIN CALCIUM [Concomitant]
     Route: 048

REACTIONS (24)
  - DIAPHRAGMATIC HERNIA [None]
  - EXERCISE LACK OF [None]
  - CHOROIDAL EFFUSION [None]
  - RETINAL HAEMORRHAGE [None]
  - MYDRIASIS [None]
  - PARAESTHESIA [None]
  - ANAEMIA [None]
  - PAIN IN EXTREMITY [None]
  - NEUROPATHY PERIPHERAL [None]
  - VISION BLURRED [None]
  - ASTHENIA [None]
  - PNEUMONITIS [None]
  - INTERVERTEBRAL DISC PROTRUSION [None]
  - PAIN [None]
  - HYPERTENSION [None]
  - URINARY TRACT INFLAMMATION [None]
  - URINARY TRACT INFECTION [None]
  - JOINT SWELLING [None]
  - LUMBAR HERNIA [None]
  - VISUAL IMPAIRMENT [None]
  - FATIGUE [None]
  - NOCTURIA [None]
  - BURNING SENSATION [None]
  - OSTEOARTHRITIS [None]
